FAERS Safety Report 9137094 (Version 1)
Quarter: 2013Q1

REPORT INFORMATION
  Report Type: Spontaneous
  Country: US (occurrence: US)
  Receive Date: 20130219
  Receipt Date: 20130219
  Transmission Date: 20140127
  Serious: No
  Sender: FDA-Public Use
  Company Number: US-BRISTOL-MYERS SQUIBB COMPANY-16798720

PATIENT
  Age: 58 Year
  Sex: Female
  Weight: 59 kg

DRUGS (4)
  1. ORENCIA FOR INJ [Suspect]
     Indication: RHEUMATOID ARTHRITIS
     Dosage: THERAPY DATES 24JUL12
     Route: 058
     Dates: start: 20120723
  2. METHOTREXATE [Concomitant]
  3. FOLIC ACID [Concomitant]
  4. NORVASC [Concomitant]

REACTIONS (1)
  - Hypertension [Unknown]
